FAERS Safety Report 4580736-2 (Version None)
Quarter: 2005Q1

REPORT INFORMATION
  Report Type: 
  Country: None (occurrence: None)
  Receive Date: 20050214
  Receipt Date: 20040521
  Transmission Date: 20050727
  Serious: No
  Sender: FDA-Public Use
  Company Number: US-GLAXOSMITHKLINE-A0511759A

PATIENT
  Sex: Male

DRUGS (9)
  1. LAMICTAL [Suspect]
     Indication: BIPOLAR DISORDER
     Dosage: 100MG PER DAY
     Route: 048
     Dates: start: 20040430
  2. LEXAPRO [Concomitant]
  3. RISPERDAL [Concomitant]
  4. NEURONTIN [Concomitant]
  5. ASACOL [Concomitant]
  6. LIPITOR [Concomitant]
  7. LOPRESSOR [Concomitant]
  8. ASPIRIN [Concomitant]
  9. PLAVIX [Concomitant]

REACTIONS (1)
  - ORAL DISCOMFORT [None]
